FAERS Safety Report 6061978-6 (Version None)
Quarter: 2009Q1

REPORT INFORMATION
  Report Type: 
  Country: None (occurrence: None)
  Receive Date: 20090202
  Receipt Date: 20090127
  Transmission Date: 20090719
  Serious: No
  Sender: FDA-Public Use
  Company Number: US-B.I. PHARMACEUTICALS,INC./RIDGEFIELD-2009-BP-01078BP

PATIENT
  Age: 78 Year
  Sex: Female

DRUGS (8)
  1. ATROVENT HFA [Suspect]
     Indication: ASTHMA
     Dosage: 68MCG
     Route: 055
     Dates: start: 20070101
  2. LANOXIN [Concomitant]
     Indication: HEART RATE IRREGULAR
  3. THYROID TAB [Concomitant]
     Indication: HYPOTHYROIDISM
  4. OCTOGOL [Concomitant]
     Indication: BILIARY CIRRHOSIS PRIMARY
  5. COUMADIN [Concomitant]
     Indication: DEEP VEIN THROMBOSIS
  6. AEROBID [Concomitant]
     Indication: ASTHMA
  7. INTAL [Concomitant]
     Indication: ASTHMA
  8. VITAMINS [Concomitant]

REACTIONS (5)
  - DIZZINESS [None]
  - ERYTHEMA [None]
  - HEADACHE [None]
  - MUSCULOSKELETAL DISCOMFORT [None]
  - SWELLING [None]
